FAERS Safety Report 23648555 (Version 3)
Quarter: 2024Q2

REPORT INFORMATION
  Report Type: Spontaneous
  Country: DE (occurrence: DE)
  Receive Date: 20240319
  Receipt Date: 20240521
  Transmission Date: 20240716
  Serious: Yes (Hospitalization, Other)
  Sender: FDA-Public Use
  Company Number: None

PATIENT
  Age: 56 Year
  Sex: Female
  Weight: 83 kg

DRUGS (4)
  1. SULFASALAZINE [Suspect]
     Active Substance: SULFASALAZINE
     Indication: Arthritis
     Dosage: 2500 MG
     Route: 048
     Dates: start: 202105, end: 20240229
  2. SULFASALAZINE [Suspect]
     Active Substance: SULFASALAZINE
     Indication: Oligoarthritis
     Dosage: 2500 MG
     Route: 048
     Dates: start: 202105, end: 20240229
  3. SULFASALAZINE [Suspect]
     Active Substance: SULFASALAZINE
     Dosage: 2500 MG
     Route: 048
     Dates: start: 202105, end: 20240229
  4. SULFASALAZINE [Suspect]
     Active Substance: SULFASALAZINE
     Dosage: 2500 MG
     Route: 048
     Dates: start: 202105, end: 20240229

REACTIONS (26)
  - Intervertebral disc protrusion [Unknown]
  - Polyarthritis [Unknown]
  - Blister [Unknown]
  - Skin exfoliation [Unknown]
  - Disturbance in attention [Unknown]
  - Arthralgia [Recovering/Resolving]
  - Paraesthesia [Recovering/Resolving]
  - Hot flush [Unknown]
  - Rheumatoid nodule [Unknown]
  - Tinnitus [Unknown]
  - Asthenia [Unknown]
  - Visual impairment [Unknown]
  - Fatigue [Unknown]
  - Muscle spasms [Unknown]
  - Hyperhidrosis [Unknown]
  - Apathy [Unknown]
  - Palpitations [Unknown]
  - Anal inflammation [Unknown]
  - Weight increased [Unknown]
  - Sleep disorder [Unknown]
  - Gait disturbance [Unknown]
  - Muscular weakness [Unknown]
  - Breast enlargement [Unknown]
  - Dizziness [Unknown]
  - Weight bearing difficulty [Recovered/Resolved]
  - Radiculopathy [Recovered/Resolved]

NARRATIVE: CASE EVENT DATE: 20210101
